FAERS Safety Report 9482013 (Version 1)
Quarter: 2013Q3

REPORT INFORMATION
  Report Type: Spontaneous
  Country: MX (occurrence: MX)
  Receive Date: 20130828
  Receipt Date: 20130828
  Transmission Date: 20140515
  Serious: Yes (Other)
  Sender: FDA-Public Use
  Company Number: MX-AMGEN-MEXSP2013059555

PATIENT
  Age: 57 Year
  Sex: Female

DRUGS (1)
  1. PROLIA [Suspect]
     Indication: PRODUCT USED FOR UNKNOWN INDICATION
     Dosage: 60 MG/ML, Q6MO
     Route: 058
     Dates: start: 20130101

REACTIONS (2)
  - Helicobacter gastritis [Not Recovered/Not Resolved]
  - Herpes virus infection [Unknown]
